APPROVED DRUG PRODUCT: METOPROLOL TARTRATE
Active Ingredient: METOPROLOL TARTRATE
Strength: 100MG
Dosage Form/Route: TABLET;ORAL
Application: A074217 | Product #002
Applicant: WATSON LABORATORIES INC
Approved: May 27, 1994 | RLD: No | RS: No | Type: DISCN